FAERS Safety Report 8202662-X (Version None)
Quarter: 2012Q1

REPORT INFORMATION
  Report Type: 
  Country: None (occurrence: None)
  Receive Date: 20120312
  Receipt Date: 20120305
  Transmission Date: 20120608
  Serious: Yes (Other)
  Sender: FDA-Public Use
  Company Number: PHHY2012AU019401

PATIENT
  Age: 35 Year
  Sex: Male

DRUGS (2)
  1. PAROXETINE [Suspect]
     Indication: ANTISOCIAL BEHAVIOUR
     Dosage: 20 MG, QD
  2. PAROXETINE [Suspect]
     Indication: EMOTIONAL DISTRESS

REACTIONS (13)
  - FEELING ABNORMAL [None]
  - LIBIDO INCREASED [None]
  - ERECTION INCREASED [None]
  - TACHYPHRENIA [None]
  - AGGRESSION [None]
  - ANGER [None]
  - DECREASED INTEREST [None]
  - SUICIDAL IDEATION [None]
  - HOMICIDE [None]
  - NIGHTMARE [None]
  - AKATHISIA [None]
  - DEPRESSION [None]
  - ANXIETY [None]
